FAERS Safety Report 15262686 (Version 2)
Quarter: 2018Q3

REPORT INFORMATION
  Report Type: Report from Study
  Country: None (occurrence: US)
  Receive Date: 20180809
  Receipt Date: 20180918
  Transmission Date: 20181010
  Serious: Yes (Hospitalization, Other)
  Sender: FDA-Public Use
  Company Number: US-VIFOR (INTERNATIONAL) INC.-VIT-2018-07391

PATIENT
  Age: 80 Year
  Sex: Female

DRUGS (19)
  1. FOLIC ACID. [Concomitant]
     Active Substance: FOLIC ACID
  2. VELTASSA [Suspect]
     Active Substance: PATIROMER
     Indication: HYPERKALAEMIA
     Route: 048
     Dates: start: 20180721
  3. LORAZEPAM. [Concomitant]
     Active Substance: LORAZEPAM
  4. RANITIDINE. [Concomitant]
     Active Substance: RANITIDINE
  5. TYLENOL [Concomitant]
     Active Substance: ACETAMINOPHEN
  6. CITALOPRAM [Concomitant]
     Active Substance: CITALOPRAM HYDROBROMIDE
  7. FISH OIL [Concomitant]
     Active Substance: FISH OIL
  8. PRESERVISION [Concomitant]
     Active Substance: MINERALS\VITAMINS
  9. PROLIA [Concomitant]
     Active Substance: DENOSUMAB
  10. AMLODIPINE [Concomitant]
     Active Substance: AMLODIPINE BESYLATE
  11. ASPIRIN. [Concomitant]
     Active Substance: ASPIRIN
  12. ATORVASTATIN [Concomitant]
     Active Substance: ATORVASTATIN
  13. CENTRUM [Concomitant]
     Active Substance: VITAMINS
  14. CITRACAL [Concomitant]
     Active Substance: CALCIUM CITRATE
  15. METOPROLOL. [Concomitant]
     Active Substance: METOPROLOL
  16. TRAVATAN Z [Concomitant]
     Active Substance: TRAVOPROST
  17. VELTASSA [Suspect]
     Active Substance: PATIROMER
     Route: 048
     Dates: start: 20180801, end: 2018
  18. HCTZ [Concomitant]
     Active Substance: HYDROCHLOROTHIAZIDE
  19. PARICALCITOL. [Concomitant]
     Active Substance: PARICALCITOL

REACTIONS (6)
  - Constipation [Not Recovered/Not Resolved]
  - Nausea [Unknown]
  - Abdominal pain [Unknown]
  - Colitis ischaemic [Unknown]
  - Diarrhoea haemorrhagic [Not Recovered/Not Resolved]
  - Abdominal discomfort [Unknown]

NARRATIVE: CASE EVENT DATE: 2018
